FAERS Safety Report 7438940-1 (Version None)
Quarter: 2011Q2

REPORT INFORMATION
  Report Type: 
  Country: None (occurrence: None)
  Receive Date: 20110426
  Receipt Date: 20110419
  Transmission Date: 20111010
  Serious: Yes (Life-Threatening)
  Sender: FDA-Public Use
  Company Number: DE-BAYER-2011-034212

PATIENT
  Age: 62 Year
  Sex: Male

DRUGS (3)
  1. ULTRAGRAF 370 [Suspect]
     Dosage: 280 ML, ONCE
     Route: 042
     Dates: start: 20110107, end: 20110107
  2. LISINOPRIL [Suspect]
     Dosage: UNK
     Dates: start: 20100401, end: 20110109
  3. ULTRAGRAF 370 [Suspect]
     Indication: ARTERIOGRAM CORONARY
     Dosage: 490 ML, ONCE
     Route: 042
     Dates: start: 20110106, end: 20110106

REACTIONS (2)
  - BLOOD CREATININE INCREASED [None]
  - RENAL FAILURE ACUTE [None]
